FAERS Safety Report 19248903 (Version 3)
Quarter: 2021Q2

REPORT INFORMATION
  Report Type: Report from Study
  Country: US (occurrence: US)
  Receive Date: 20210512
  Receipt Date: 20210617
  Transmission Date: 20210717
  Serious: No
  Sender: FDA-Public Use
  Company Number: US-GLAXOSMITHKLINE-US2021AMR082731

PATIENT
  Age: 73 Year
  Sex: Female

DRUGS (1)
  1. BELANTAMAB MAFODOTIN. [Suspect]
     Active Substance: BELANTAMAB MAFODOTIN
     Indication: PLASMA CELL MYELOMA
     Dosage: 181 MG, Z, 21 DAYS
     Dates: start: 20210322, end: 20210412

REACTIONS (3)
  - Visual acuity reduced [Unknown]
  - Night blindness [Unknown]
  - Keratopathy [Unknown]

NARRATIVE: CASE EVENT DATE: 20210426
